FAERS Safety Report 9716158 (Version 1)
Quarter: 2013Q4

REPORT INFORMATION
  Report Type: Spontaneous
  Country: US (occurrence: None)
  Receive Date: 20131126
  Receipt Date: 20131126
  Transmission Date: 20140711
  Serious: No
  Sender: FDA-Public Use
  Company Number: None

PATIENT
  Age: 56 Year
  Sex: Female

DRUGS (1)
  1. AUBAGIO [Suspect]
     Route: 048
     Dates: start: 20130122, end: 20131110

REACTIONS (4)
  - Myalgia [None]
  - Palpitations [None]
  - Gait disturbance [None]
  - Scleral haemorrhage [None]
